FAERS Safety Report 11287627 (Version 2)
Quarter: 2015Q3

REPORT INFORMATION
  Report Type: Spontaneous
  Country: US (occurrence: US)
  Receive Date: 20150721
  Receipt Date: 20150807
  Transmission Date: 20151125
  Serious: No
  Sender: FDA-Public Use
  Company Number: US-PFIZER INC-2015241176

PATIENT
  Age: 6 Year
  Sex: Male
  Weight: 24 kg

DRUGS (1)
  1. QUILLIVANT XR [Suspect]
     Active Substance: METHYLPHENIDATE HYDROCHLORIDE
     Indication: ATTENTION DEFICIT/HYPERACTIVITY DISORDER
     Dosage: 10 MG EVERY MORNING
     Route: 048
     Dates: start: 20150709

REACTIONS (4)
  - Trismus [Unknown]
  - Bruxism [Recovered/Resolved]
  - Eating disorder [Unknown]
  - Tongue biting [Unknown]

NARRATIVE: CASE EVENT DATE: 20150709
